FAERS Safety Report 25792247 (Version 1)
Quarter: 2025Q3

REPORT INFORMATION
  Report Type: Spontaneous
  Country: US (occurrence: US)
  Receive Date: 20250911
  Receipt Date: 20250911
  Transmission Date: 20251021
  Serious: No
  Sender: SANOFI AVENTIS
  Company Number: US-SA-2025SA270883

PATIENT
  Sex: Female
  Weight: 52.154 kg

DRUGS (9)
  1. DUPIXENT [Suspect]
     Active Substance: DUPILUMAB
     Indication: Pemphigoid
     Dosage: 300 MG, QOW
     Route: 058
  2. LOSARTAN POTASSIUM [Concomitant]
     Active Substance: LOSARTAN POTASSIUM
  3. CHLORTHALIDONE [Concomitant]
     Active Substance: CHLORTHALIDONE
  4. ARMOUR THYROID [Concomitant]
     Active Substance: THYROID, PORCINE
  5. AMLODIPINE BESYLATE [Concomitant]
     Active Substance: AMLODIPINE BESYLATE
  6. VITAMIN C [Concomitant]
     Active Substance: ASCORBIC ACID
  7. MAGNESIUM GLYCINATE [Concomitant]
     Active Substance: MAGNESIUM GLYCINATE
  8. DIETARY SUPPLEMENT [Concomitant]
     Active Substance: DIETARY SUPPLEMENT
  9. CENTRUM ADULTS [Concomitant]

REACTIONS (2)
  - Blood cholesterol increased [Not Recovered/Not Resolved]
  - Arteriosclerosis [Not Recovered/Not Resolved]
